FAERS Safety Report 24379991 (Version 2)
Quarter: 2024Q4

REPORT INFORMATION
  Report Type: Spontaneous
  Country: US (occurrence: US)
  Receive Date: 20240930
  Receipt Date: 20241017
  Transmission Date: 20250115
  Serious: No
  Sender: SUNOVION
  Company Number: US-SUMITOMO PHARMA SWITZERLAND GMBH-2024SPA003126

PATIENT
  Sex: Female

DRUGS (1)
  1. GEMTESA [Suspect]
     Active Substance: VIBEGRON
     Dosage: UNK
     Route: 048
     Dates: start: 202409

REACTIONS (3)
  - Vitamin B12 increased [Unknown]
  - Vitamin B6 increased [Unknown]
  - Blood folate increased [Unknown]

NARRATIVE: CASE EVENT DATE: 20240901
